FAERS Safety Report 7466488-7 (Version None)
Quarter: 2011Q2

REPORT INFORMATION
  Report Type: 
  Country: None (occurrence: None)
  Receive Date: 20110509
  Receipt Date: 20100823
  Transmission Date: 20111010
  Serious: No
  Sender: FDA-Public Use
  Company Number: US-ALEXION-A201001048

PATIENT
  Sex: Male

DRUGS (3)
  1. SOLIRIS [Suspect]
     Indication: PAROXYSMAL NOCTURNAL HAEMOGLOBINURIA
     Dosage: 600 MG, QW
     Route: 042
     Dates: start: 20100714, end: 20100811
  2. SOLIRIS [Suspect]
     Dosage: 900 MG, Q14D
     Route: 042
     Dates: start: 20100811
  3. COUMADIN [Concomitant]
     Indication: ATRIAL FIBRILLATION
     Dosage: 10.0-12.5 MG,QD

REACTIONS (8)
  - MYALGIA [None]
  - HEADACHE [None]
  - PLATELET COUNT DECREASED [None]
  - ARTHRALGIA [None]
  - NAUSEA [None]
  - FATIGUE [None]
  - INTERNATIONAL NORMALISED RATIO INCREASED [None]
  - DISTURBANCE IN ATTENTION [None]
